FAERS Safety Report 17294927 (Version 3)
Quarter: 2023Q1

REPORT INFORMATION
  Report Type: Spontaneous
  Country: US (occurrence: US)
  Receive Date: 20200121
  Receipt Date: 20230227
  Transmission Date: 20230418
  Serious: No
  Sender: FDA-Public Use
  Company Number: US-PFIZER INC-2020023977

PATIENT
  Age: 84 Year
  Sex: Male
  Weight: 80.29 kg

DRUGS (5)
  1. VYNDAQEL [Suspect]
     Active Substance: TAFAMIDIS MEGLUMINE
     Indication: Cardiac amyloidosis
     Dosage: 80 MG, 1X/DAY (TAKING 20 MG VYNDAQEL ONE TIME A DAY 4 CAPS)
     Route: 048
     Dates: start: 20190813
  2. FLUOROURACIL [Suspect]
     Active Substance: FLUOROURACIL
     Indication: Actinic keratosis
     Dosage: 5 %, UNK
     Route: 061
     Dates: start: 20200114
  3. FLUOROURACIL [Suspect]
     Active Substance: FLUOROURACIL
     Indication: Basal cell carcinoma
  4. CALCIPOTRIENE [Suspect]
     Active Substance: CALCIPOTRIENE
     Indication: Actinic keratosis
     Dosage: 0.005 %, UNK
     Route: 061
     Dates: start: 20200114
  5. CALCIPOTRIENE [Suspect]
     Active Substance: CALCIPOTRIENE
     Indication: Basal cell carcinoma

REACTIONS (2)
  - Hypoacusis [Unknown]
  - Body height decreased [Unknown]
